FAERS Safety Report 15018734 (Version 2)
Quarter: 2018Q3

REPORT INFORMATION
  Report Type: Spontaneous
  Country: US (occurrence: US)
  Receive Date: 20180616
  Receipt Date: 20180806
  Transmission Date: 20181010
  Serious: Yes (Life-Threatening, Hospitalization, Other)
  Sender: FDA-Public Use
  Company Number: US-ZYDUS-020480

PATIENT
  Age: 81 Year
  Sex: Female

DRUGS (5)
  1. AMIODARONE [Suspect]
     Active Substance: AMIODARONE
     Indication: ARRHYTHMIA
     Route: 065
  2. FUROSEMIDE. [Concomitant]
     Active Substance: FUROSEMIDE
     Indication: PRODUCT USED FOR UNKNOWN INDICATION
     Route: 065
  3. APIXABAN [Concomitant]
     Active Substance: APIXABAN
     Indication: PRODUCT USED FOR UNKNOWN INDICATION
     Route: 065
  4. CARVEDILOL/CARVEDILOL HYDROCHLODRIDE [Concomitant]
     Indication: PRODUCT USED FOR UNKNOWN INDICATION
     Route: 065
  5. LISINOPRIL. [Concomitant]
     Active Substance: LISINOPRIL
     Indication: PRODUCT USED FOR UNKNOWN INDICATION
     Route: 065

REACTIONS (14)
  - Disorientation [Recovering/Resolving]
  - Asthenia [Recovering/Resolving]
  - Hypothyroidism [Recovering/Resolving]
  - Metabolic encephalopathy [Recovering/Resolving]
  - Myxoedema coma [Recovering/Resolving]
  - Memory impairment [Recovering/Resolving]
  - Swelling face [Recovering/Resolving]
  - Confusional state [Recovering/Resolving]
  - Lethargy [Recovering/Resolving]
  - Malaise [Recovering/Resolving]
  - Temperature intolerance [Recovering/Resolving]
  - Oedema [Recovering/Resolving]
  - Eye swelling [Recovering/Resolving]
  - Bradycardia [Recovering/Resolving]
